FAERS Safety Report 8368739-3 (Version None)
Quarter: 2012Q2

REPORT INFORMATION
  Report Type: 
  Country: None (occurrence: None)
  Receive Date: 20120518
  Receipt Date: 20120511
  Transmission Date: 20120825
  Serious: No
  Sender: FDA-Public Use
  Company Number: US-BIOGENIDEC-2012BI016866

PATIENT
  Age: 46 Year
  Sex: Female

DRUGS (4)
  1. AVONEX [Concomitant]
     Indication: MULTIPLE SCLEROSIS
     Route: 030
     Dates: start: 19991031, end: 20041020
  2. AVONEX [Concomitant]
     Route: 030
  3. TYSABRI [Suspect]
     Route: 042
     Dates: start: 20100702
  4. TYSABRI [Suspect]
     Indication: MULTIPLE SCLEROSIS
     Route: 042
     Dates: start: 20071001, end: 20090910

REACTIONS (5)
  - PARAESTHESIA [None]
  - HYPOAESTHESIA [None]
  - DYSSTASIA [None]
  - MUSCULOSKELETAL DISORDER [None]
  - IRRITABILITY [None]
